FAERS Safety Report 13790679 (Version 2)
Quarter: 2017Q3

REPORT INFORMATION
  Report Type: Spontaneous
  Country: HU (occurrence: HU)
  Receive Date: 20170725
  Receipt Date: 20170831
  Transmission Date: 20171127
  Serious: Yes (Hospitalization, Disabling, Other)
  Sender: FDA-Public Use
  Company Number: HU-TEVA-787751ACC

PATIENT
  Age: 69 Year
  Sex: Female

DRUGS (15)
  1. THIOGAMMA [Concomitant]
     Active Substance: THIOCTIC ACID
  2. NAMAXIR [Suspect]
     Active Substance: METHOTREXATE
     Indication: ARTHROPATHY
     Route: 058
     Dates: start: 20170518, end: 20170531
  3. PANTOPRAZOLE [Concomitant]
     Active Substance: PANTOPRAZOLE
     Dosage: 40 MILLIGRAM DAILY;
  4. MYOFLEXIN [Concomitant]
     Dosage: 250 MILLIGRAM DAILY;
  5. TRAMADOL. [Concomitant]
     Active Substance: TRAMADOL
     Indication: ARTHRALGIA
     Dosage: 25 MILLIGRAM DAILY;
  6. MEDROL [Concomitant]
     Active Substance: METHYLPREDNISOLONE
     Indication: ARTHROPATHY
  7. POTASSIUM CHLORIDE. [Concomitant]
     Active Substance: POTASSIUM CHLORIDE
  8. FRONTIN [Concomitant]
     Active Substance: ALPRAZOLAM
  9. AMLODIPINE [Concomitant]
     Active Substance: AMLODIPINE BESYLATE
     Indication: HYPERTENSION
     Dosage: 5 MILLIGRAM DAILY;
  10. MILURIT [Concomitant]
     Active Substance: ALLOPURINOL
     Indication: GOUT
     Dosage: 100 MILLIGRAM DAILY;
  11. XETER [Concomitant]
     Active Substance: ROSUVASTATIN CALCIUM
     Indication: BLOOD CHOLESTEROL INCREASED
     Dosage: 40 MILLIGRAM DAILY;
  12. GLIMEPIRIDE. [Concomitant]
     Active Substance: GLIMEPIRIDE
     Dosage: 4 MILLIGRAM DAILY;
  13. VITAMIN D [Concomitant]
     Active Substance: CHOLECALCIFEROL
  14. FLECTOR [Concomitant]
     Active Substance: DICLOFENAC EPOLAMINE
  15. MALTOFER [Concomitant]
     Active Substance: IRON POLYMALTOSE

REACTIONS (15)
  - Muscular weakness [Recovering/Resolving]
  - Dysgeusia [Recovering/Resolving]
  - Somnolence [Recovering/Resolving]
  - Blood glucose increased [Recovering/Resolving]
  - Hallucination, visual [Recovered/Resolved]
  - Hypoaesthesia [Recovering/Resolving]
  - Myalgia [Recovering/Resolving]
  - Fatigue [Recovering/Resolving]
  - Confusional state [Recovered/Resolved]
  - Dizziness [Recovering/Resolving]
  - Fall [Unknown]
  - Arthralgia [Recovering/Resolving]
  - Asthenia [Recovering/Resolving]
  - Herpes virus infection [Unknown]
  - Erythema [Recovered/Resolved]

NARRATIVE: CASE EVENT DATE: 201706
